FAERS Safety Report 6702598-7 (Version None)
Quarter: 2010Q2

REPORT INFORMATION
  Report Type: 
  Country: None (occurrence: None)
  Receive Date: 20100429
  Receipt Date: 20100419
  Transmission Date: 20101027
  Serious: Yes (Other)
  Sender: FDA-Public Use
  Company Number: US-PFIZER INC-2010042989

PATIENT
  Sex: Female
  Weight: 65.76 kg

DRUGS (6)
  1. CHANTIX [Suspect]
     Indication: SMOKING CESSATION THERAPY
     Dosage: 0.5 MG, DAILY
     Route: 048
     Dates: start: 20100301, end: 20100410
  2. CHANTIX [Suspect]
     Dosage: UNK
     Route: 048
     Dates: start: 20100401, end: 20100401
  3. LITHIUM [Suspect]
     Indication: BIPOLAR DISORDER
     Dosage: UNK
     Dates: start: 20100201, end: 20100301
  4. XANAX [Concomitant]
     Dosage: UNK
  5. NAVANE [Concomitant]
     Indication: PSYCHOTIC DISORDER
     Dosage: 2 MG, 1X/DAY
     Route: 048
  6. LAMICTAL [Concomitant]
     Indication: MOOD ALTERED
     Dosage: 300 MG, 1X/DAY
     Route: 048
     Dates: start: 20090101

REACTIONS (1)
  - OBSESSIVE-COMPULSIVE DISORDER [None]
